FAERS Safety Report 18202110 (Version 5)
Quarter: 2024Q2

REPORT INFORMATION
  Report Type: Spontaneous
  Country: US (occurrence: US)
  Receive Date: 20200827
  Receipt Date: 20240401
  Transmission Date: 20240716
  Serious: No
  Sender: FDA-Public Use
  Company Number: US-PFIZER INC-2020328262

PATIENT
  Age: 74 Year
  Sex: Female
  Weight: 59.42 kg

DRUGS (3)
  1. XELJANZ [Suspect]
     Active Substance: TOFACITINIB CITRATE
     Indication: Colitis ulcerative
     Dosage: TWO 5MG TABLETS IN THE MORNING AND TWO 5MG TABLETS IN THE EVENING
     Route: 048
     Dates: start: 20200813
  2. XELJANZ [Suspect]
     Active Substance: TOFACITINIB CITRATE
     Dosage: 5 MG, 1X/DAY
     Route: 048
  3. XELJANZ [Suspect]
     Active Substance: TOFACITINIB CITRATE
     Dosage: 5 MG, 2X/DAY

REACTIONS (5)
  - Fatigue [Unknown]
  - Headache [Unknown]
  - Eye disorder [Unknown]
  - Product dispensing error [Unknown]
  - Off label use [Unknown]
